FAERS Safety Report 9206856 (Version 2)
Quarter: 2014Q1

REPORT INFORMATION
  Report Type: Spontaneous
  Country: US (occurrence: US)
  Receive Date: 20130403
  Receipt Date: 20140205
  Transmission Date: 20141002
  Serious: Yes (Other)
  Sender: FDA-Public Use
  Company Number: US-BAYER-2013-041110

PATIENT
  Age: 21 Year
  Sex: Female

DRUGS (10)
  1. YAZ [Suspect]
     Dosage: UNK
     Dates: start: 20090716
  2. YASMIN [Suspect]
     Dosage: UNK
     Dates: start: 20090716
  3. OCELLA [Suspect]
     Dosage: UNK
     Dates: start: 20090716
  4. GIANVI [Suspect]
     Dosage: UNK
     Dates: start: 20090716
  5. TOPIRAMATE [Concomitant]
     Dosage: 25 MG, UNK
     Dates: start: 20100309, end: 20100415
  6. HYDROCODONE W/APAP [Concomitant]
     Dosage: 5-500
     Dates: start: 20100325, end: 20100416
  7. AMOXICILLIN [Concomitant]
     Dosage: 250 MG, UNK
     Dates: start: 20100409
  8. FLUTICASONE [Concomitant]
     Dosage: 50 MCG
     Dates: start: 20100409
  9. IBUPROFEN [Concomitant]
     Dosage: 800 MG, UNK
     Dates: start: 20100415
  10. ONDANSETRON [Concomitant]
     Dosage: 4 MG, UNK
     Dates: start: 20100415

REACTIONS (9)
  - Cholelithiasis [None]
  - Gallbladder injury [None]
  - Injury [None]
  - Pain [None]
  - Emotional distress [None]
  - General physical health deterioration [None]
  - Deep vein thrombosis [None]
  - Anxiety [None]
  - Pain [None]
